FAERS Safety Report 7533800-X (Version None)
Quarter: 2011Q2

REPORT INFORMATION
  Report Type: 
  Country: None (occurrence: None)
  Receive Date: 20110608
  Receipt Date: 20110603
  Transmission Date: 20111010
  Serious: Yes (Other)
  Sender: FDA-Public Use
  Company Number: US-ABBOTT-11P-163-0720242-00

PATIENT
  Age: 60 Year
  Sex: Male
  Weight: 57.7 kg

DRUGS (6)
  1. TENOFOVIR DISOPROXIL FUMARATE [Concomitant]
     Indication: PRODUCT USED FOR UNKNOWN INDICATION
  2. FLUTICASONE PROPIONATE W/SALMETEROL [Interacting]
     Indication: BRONCHIECTASIS
     Dosage: 50/250 MG-2 PUFFS TWICE DAILY
     Route: 055
     Dates: start: 20030201
  3. TESTOSTERONE [Concomitant]
     Indication: HYPOGONADISM
  4. COMBIVIR [Concomitant]
     Indication: PRODUCT USED FOR UNKNOWN INDICATION
  5. RITONAVIR [Suspect]
     Indication: HIV INFECTION
     Dates: start: 20000201
  6. FLUTICASONE PROPIONATE [Interacting]
     Indication: PRODUCT USED FOR UNKNOWN INDICATION
     Dosage: 2 PUFFS IN EACH NOSTRIL DAILY
     Route: 045

REACTIONS (4)
  - DRUG INTERACTION [None]
  - OSTEOPOROSIS [None]
  - OSTEONECROSIS [None]
  - SECONDARY ADRENOCORTICAL INSUFFICIENCY [None]
